FAERS Safety Report 8267912-2 (Version None)
Quarter: 2012Q2

REPORT INFORMATION
  Report Type: 
  Country: None (occurrence: None)
  Receive Date: 20120409
  Receipt Date: 20120402
  Transmission Date: 20120825
  Serious: Yes (Other)
  Sender: FDA-Public Use
  Company Number: US-BAYER-200940441NA

PATIENT
  Age: 61 Year
  Sex: Male
  Weight: 95 kg

DRUGS (22)
  1. ANCEF [Concomitant]
     Dosage: 1 G, UNK
     Route: 042
     Dates: start: 20070807
  2. LORATADINE [Concomitant]
     Dosage: 10 MG, ONCE
     Route: 048
  3. HEPARIN [Concomitant]
     Dosage: PER PROTOCOL
     Route: 042
     Dates: start: 20070807
  4. APRESOLINE [Concomitant]
     Dosage: 20 MG, TID
     Route: 042
     Dates: start: 20070807
  5. LANTUS [Concomitant]
     Dosage: 18 U, ONCE
     Route: 058
  6. TRASYLOL [Suspect]
     Indication: CORONARY ARTERY BYPASS
     Dosage: 1ML TEST DOSE, 200CC LOADING DOSE THEN 50CC/HOUR HOUR
     Route: 042
     Dates: start: 20070807, end: 20070807
  7. NOVOLOG [Concomitant]
     Dosage: SLIDING SCALE
  8. IMDUR [Concomitant]
     Dosage: 30 MG, BID
     Route: 048
  9. SIMVASTATIN [Concomitant]
     Dosage: 40 MG, ONCE
     Route: 048
  10. ASPIRIN [Concomitant]
     Dosage: 81 MG, QD
     Route: 048
  11. CIPROFLOXACIN (EXTENDED RELEASE RANBAXY) [Concomitant]
     Dosage: 500 MG, TID
     Route: 048
  12. PLAVIX [Concomitant]
     Dosage: 75 MG, ONCE
     Route: 048
  13. PERCOCET [Concomitant]
     Dosage: 1 TAB AS NEEDED/EVERY 4HRS
     Route: 048
  14. ALBUTEROL [Concomitant]
     Dosage: AS NEEDED,INHALATION
  15. PROTONIX [Concomitant]
     Dosage: 40 MG, TID
     Route: 048
     Dates: start: 20070806
  16. OXYCODONE HCL [Concomitant]
     Dosage: 5-10MG/2 TAB/EVERY 3 HOURS AS NEEDED
     Route: 048
     Dates: start: 20070805
  17. VANCOMYCIN [Concomitant]
     Dosage: 1GRAM/EVERY 12 HOURSX2
     Route: 042
     Dates: start: 20070807
  18. LASIX [Concomitant]
     Dosage: 40 MG, TID
     Route: 048
     Dates: start: 20070804
  19. ZOFRAN [Concomitant]
     Dosage: 4MG/2ML/EVERY 6HRS
     Route: 042
     Dates: start: 20070806
  20. POTASSIUM CHLORIDE [Concomitant]
  21. LOPRESSOR [Concomitant]
     Dosage: 100 MG, BID
     Route: 048
  22. DILAUDID [Concomitant]
     Dosage: 0.5 MG, ONCE
     Route: 042

REACTIONS (12)
  - RENAL IMPAIRMENT [None]
  - STRESS [None]
  - PAIN [None]
  - UNEVALUABLE EVENT [None]
  - EMOTIONAL DISTRESS [None]
  - FEAR [None]
  - INJURY [None]
  - PSYCHOLOGICAL TRAUMA [None]
  - RENAL INJURY [None]
  - ANHEDONIA [None]
  - RENAL FAILURE [None]
  - ANXIETY [None]
